FAERS Safety Report 17302819 (Version 2)
Quarter: 2020Q1

REPORT INFORMATION
  Report Type: Spontaneous
  Country: US (occurrence: US)
  Receive Date: 20200122
  Receipt Date: 20200304
  Transmission Date: 20200409
  Serious: No
  Sender: FDA-Public Use
  Company Number: US-TEVA-2020-US-1170171

PATIENT
  Sex: Female

DRUGS (2)
  1. ESTRADIOL. [Suspect]
     Active Substance: ESTRADIOL
     Route: 067
  2. ESTRADIOL. [Suspect]
     Active Substance: ESTRADIOL
     Indication: VULVOVAGINAL DRYNESS
     Route: 067

REACTIONS (6)
  - Dyspareunia [Unknown]
  - Loss of libido [Unknown]
  - Vulvovaginal burning sensation [Unknown]
  - Urinary tract infection [Unknown]
  - Vulvovaginal dryness [Not Recovered/Not Resolved]
  - Drug ineffective [Unknown]
